FAERS Safety Report 16936573 (Version 2)
Quarter: 2022Q2

REPORT INFORMATION
  Report Type: Spontaneous
  Country: CA (occurrence: CA)
  Receive Date: 20191018
  Receipt Date: 20220411
  Transmission Date: 20220721
  Serious: Yes (Hospitalization, Other)
  Sender: FDA-Public Use
  Company Number: CA-ELI_LILLY_AND_COMPANY-CA201910004950

PATIENT
  Age: 53 Year
  Sex: Female

DRUGS (5)
  1. HUMULIN N [Suspect]
     Active Substance: INSULIN HUMAN
     Indication: Diabetes mellitus
     Dosage: UNK UNK, UNKNOWN
     Route: 058
     Dates: start: 201903
  2. HUMULIN N [Suspect]
     Active Substance: INSULIN HUMAN
     Dosage: 80 U, DAILY
     Route: 058
     Dates: start: 201903
  3. HUMULIN N [Suspect]
     Active Substance: INSULIN HUMAN
     Dosage: 42 U, EACH MORNING
     Route: 058
     Dates: start: 201903
  4. HUMULIN N [Suspect]
     Active Substance: INSULIN HUMAN
     Dosage: 38 U, EACH EVENING
     Route: 058
     Dates: start: 201903
  5. INVOKANA [Concomitant]
     Active Substance: CANAGLIFLOZIN
     Indication: Product used for unknown indication

REACTIONS (4)
  - Gallbladder disorder [Unknown]
  - Fall [Recovering/Resolving]
  - Lower limb fracture [Recovering/Resolving]
  - Balance disorder [Recovering/Resolving]

NARRATIVE: CASE EVENT DATE: 20190701
